FAERS Safety Report 10103495 (Version 2)
Quarter: 2014Q2

REPORT INFORMATION
  Report Type: Spontaneous
  Country: US (occurrence: US)
  Receive Date: 20140424
  Receipt Date: 20140620
  Transmission Date: 20141212
  Serious: No
  Sender: FDA-Public Use
  Company Number: US-BRISTOL-MYERS SQUIBB COMPANY-20454377

PATIENT
  Age: 64 Year
  Sex: Male
  Weight: 136.05 kg

DRUGS (1)
  1. ELIQUIS [Suspect]
     Dates: start: 2014

REACTIONS (2)
  - Pain in extremity [Recovering/Resolving]
  - Incorrect dose administered [Unknown]
